FAERS Safety Report 10243808 (Version 2)
Quarter: 2014Q2

REPORT INFORMATION
  Report Type: Spontaneous
  Country: BR (occurrence: BR)
  Receive Date: 20140618
  Receipt Date: 20140624
  Transmission Date: 20141212
  Serious: Yes (Other)
  Sender: FDA-Public Use
  Company Number: BR-PFIZER INC-2014165276

PATIENT
  Age: 71 Year
  Sex: Male
  Weight: 110 kg

DRUGS (2)
  1. XALATAN [Suspect]
     Indication: INTRAOCULAR PRESSURE TEST ABNORMAL
     Dosage: 1.5 UG (1 DROP IN RIGHT EYE), UNPECIFIED FREQUENCY
     Route: 047
     Dates: start: 2006
  2. AZOPT [Concomitant]
     Indication: INTRAOCULAR PRESSURE TEST ABNORMAL
     Dosage: 1 GTT (IN EACH EYE EVERY 12 HOURS), 2X/DAY
     Dates: start: 2008

REACTIONS (3)
  - Glaucoma [Unknown]
  - Cataract [Unknown]
  - Blindness [Not Recovered/Not Resolved]
